FAERS Safety Report 13068072 (Version 1)
Quarter: 2016Q4

REPORT INFORMATION
  Report Type: Spontaneous
  Country: DE (occurrence: DE)
  Receive Date: 20161228
  Receipt Date: 20161228
  Transmission Date: 20170207
  Serious: Yes (Other)
  Sender: FDA-Public Use
  Company Number: DE-ACTELION-A-CH2016-147216

PATIENT

DRUGS (2)
  1. ZAVESCA [Suspect]
     Active Substance: MIGLUSTAT
     Indication: LIPIDOSIS
     Dosage: UNK
     Route: 048
  2. ZAVESCA [Suspect]
     Active Substance: MIGLUSTAT
     Dosage: UNK
     Route: 048

REACTIONS (2)
  - Transaminases increased [Recovering/Resolving]
  - Pneumonia [Unknown]
